FAERS Safety Report 4697208-7 (Version None)
Quarter: 2005Q2

REPORT INFORMATION
  Report Type: 
  Country: None (occurrence: None)
  Receive Date: 20050622
  Receipt Date: 20050316
  Transmission Date: 20051028
  Serious: Yes (Other)
  Sender: FDA-Public Use
  Company Number: US-GLAXOSMITHKLINE-A0551526A

PATIENT
  Age: 28 Year
  Sex: Female
  Weight: 104.5 kg

DRUGS (2)
  1. LAMICTAL [Suspect]
     Indication: DEPRESSION
     Dosage: 200MG PER DAY
     Route: 048
  2. WELLBUTRIN XL [Concomitant]
     Dosage: 300MG PER DAY
     Route: 048

REACTIONS (2)
  - ERYTHEMA INFECTIOSUM [None]
  - RASH [None]
